FAERS Safety Report 9275584 (Version 1)
Quarter: 2012Q4

REPORT INFORMATION
  Report Type: Spontaneous
  Country: PT (occurrence: None)
  Receive Date: 20121109
  Receipt Date: 20121109
  Transmission Date: 20130627
  Serious: Yes (Death)
  Sender: FDA-Public Use
  Company Number: 2012S1000601

PATIENT
  Age: 77 Year
  Sex: Male

DRUGS (10)
  1. CUBICIN [Suspect]
     Indication: ENDOCARDITIS STAPHYLOCOCCAL
     Route: 042
     Dates: start: 20110426, end: 20110605
  2. FLUOXETINE [Concomitant]
  3. LISINOPRIL [Concomitant]
  4. AMLODIPINE [Concomitant]
  5. ROSUVASTATIN [Concomitant]
  6. ACETYLSALICYLIC ACID [Concomitant]
  7. BISOPROLOL [Concomitant]
  8. FUROSEMIDE [Concomitant]
  9. INSULIN [Concomitant]
  10. GENTAMICIN [Concomitant]

REACTIONS (3)
  - Septic shock [None]
  - Multi-organ failure [None]
  - Pseudomonas test positive [None]
